FAERS Safety Report 4615358-8 (Version None)
Quarter: 2005Q1

REPORT INFORMATION
  Report Type: 
  Country: None (occurrence: None)
  Receive Date: 20050317
  Receipt Date: 20050308
  Transmission Date: 20050727
  Serious: Yes (Other)
  Sender: FDA-Public Use
  Company Number: 2005-03-0533

PATIENT
  Sex: 0

DRUGS (1)
  1. ALDECIN (BECLOMETHASONE DIPROPIONATE)  ^LIKE VANCERIL^ [Suspect]
     Dosage: NASAL SPRAY
     Route: 045

REACTIONS (1)
  - GASTROINTESTINAL HAEMORRHAGE [None]
